FAERS Safety Report 5711188-4 (Version None)
Quarter: 2008Q2

REPORT INFORMATION
  Report Type: 
  Country: None (occurrence: None)
  Receive Date: 20080421
  Receipt Date: 20080411
  Transmission Date: 20081010
  Serious: Yes (Other)
  Sender: FDA-Public Use
  Company Number: US-AVENTIS-200812392US

PATIENT
  Sex: Female

DRUGS (3)
  1. LOVENOX [Suspect]
     Dosage: DOSE: UNK
     Dates: start: 20050527, end: 20050101
  2. LOVENOX [Suspect]
     Dosage: DOSE: UNK
     Dates: start: 20050101, end: 20050101
  3. COUMADIN [Suspect]
     Dosage: DOSE: UNK
     Dates: start: 20050101, end: 20050101

REACTIONS (10)
  - DYSPNOEA [None]
  - FLATULENCE [None]
  - GASTRITIS [None]
  - HAEMATEMESIS [None]
  - INTRA-ABDOMINAL HAEMATOMA [None]
  - OESOPHAGITIS [None]
  - PYLORIC STENOSIS [None]
  - SUPRAVENTRICULAR TACHYCARDIA [None]
  - URINARY TRACT INFECTION [None]
  - WHITE BLOOD CELL COUNT INCREASED [None]
